FAERS Safety Report 8501526-1 (Version None)
Quarter: 2012Q3

REPORT INFORMATION
  Report Type: 
  Country: None (occurrence: None)
  Receive Date: 20120710
  Receipt Date: 20120704
  Transmission Date: 20120928
  Serious: Yes (Hospitalization, Other)
  Sender: FDA-Public Use
  Company Number: JP-PFIZER INC-2012160795

PATIENT
  Age: 74 Year
  Sex: Female

DRUGS (11)
  1. LYRICA [Suspect]
     Indication: PROCEDURAL PAIN
     Dosage: UNK
     Route: 048
     Dates: end: 20120703
  2. EPADEL [Concomitant]
     Dosage: 900 MG, 2X/DAY
     Route: 048
  3. SELBEX [Concomitant]
     Dosage: (3 DOSE FORM) PER DAY
     Route: 048
  4. LIVALO [Concomitant]
     Dosage: (1 TABLET) PER DAY
     Route: 048
  5. OPALMON [Concomitant]
     Dosage: (3 TABLETS) PER DAY
     Route: 048
  6. LANSOPRAZOLE [Concomitant]
     Dosage: (1 TABLET) PER DAY
     Route: 048
  7. TOLEDOMIN [Concomitant]
     Dosage: (2 TABLETS) PER DAY
     Route: 048
  8. ESTAZOLAM [Concomitant]
     Dosage: 1TABLET) PER DAY
     Route: 048
  9. MAGMITT [Concomitant]
     Dosage: (3 TABLETS) PER DAY
     Route: 048
  10. DIOVAN [Concomitant]
     Dosage: (1.5 TABLETS) PER DAY
     Route: 048
  11. BISOPROLOL FUMARATE [Concomitant]
     Dosage: (1TABLET) PER DAY
     Route: 048

REACTIONS (3)
  - BLOOD POTASSIUM DECREASED [None]
  - BLOOD SODIUM DECREASED [None]
  - MALAISE [None]
